FAERS Safety Report 10146381 (Version 1)
Quarter: 2014Q2

REPORT INFORMATION
  Report Type: Spontaneous
  Country: US (occurrence: None)
  Receive Date: 20140430
  Receipt Date: 20140430
  Transmission Date: 20141212
  Serious: No
  Sender: FDA-Public Use
  Company Number: None

PATIENT
  Age: 44 Year
  Sex: Female
  Weight: 44.45 kg

DRUGS (6)
  1. BACTRIM (DS) [Suspect]
     Indication: URINARY TRACT INFECTION
     Dosage: BOTTLE DID NOT INDICATE, 14 PILLS, TWICE DAILY FOR 7 DAYS, BY MOUTH
     Route: 048
     Dates: start: 20140315, end: 20140321
  2. VITAMIN B12 [Concomitant]
  3. WOMEN LIFE PACK MULTI VITAMINS [Concomitant]
  4. CRANBERRIES PILLS [Concomitant]
  5. CITRACAL CALCIUM + D SLOW RELEASE 1200 [Concomitant]
  6. PROBIOTIC [Concomitant]

REACTIONS (14)
  - Fatigue [None]
  - Nausea [None]
  - Decreased appetite [None]
  - Breast tenderness [None]
  - Abdominal distension [None]
  - Depression [None]
  - Abdominal pain [None]
  - Pelvic pain [None]
  - Arthralgia [None]
  - Dizziness [None]
  - Poor quality sleep [None]
  - Anxiety [None]
  - Panic attack [None]
  - Rash [None]
